FAERS Safety Report 8293770-6 (Version None)
Quarter: 2012Q2

REPORT INFORMATION
  Report Type: 
  Country: None (occurrence: None)
  Receive Date: 20120413
  Receipt Date: 20120406
  Transmission Date: 20120825
  Serious: Yes (Other)
  Sender: FDA-Public Use
  Company Number: ADR-2012-00691

PATIENT
  Sex: Female

DRUGS (1)
  1. BACLOFEN [Suspect]
     Indication: MUSCLE SPASTICITY
     Dosage: 2000 MCG/ML, 500 MCG/ML; 1400 MCG/ML; 1100 MCG/ML;

REACTIONS (11)
  - PARAESTHESIA [None]
  - SENSATION OF HEAVINESS [None]
  - SWELLING [None]
  - OVERDOSE [None]
  - DIPLOPIA [None]
  - SOMNOLENCE [None]
  - HEADACHE [None]
  - DYSPNOEA [None]
  - BALANCE DISORDER [None]
  - HYPOAESTHESIA ORAL [None]
  - HYPOAESTHESIA [None]
